FAERS Safety Report 9705916 (Version 1)
Quarter: 2013Q4

REPORT INFORMATION
  Report Type: Spontaneous
  Country: US (occurrence: US)
  Receive Date: 20131122
  Receipt Date: 20131122
  Transmission Date: 20140711
  Serious: No
  Sender: FDA-Public Use
  Company Number: US-GALDERMA-US13000998

PATIENT
  Age: 25 Year
  Sex: Male
  Weight: 118 kg

DRUGS (1)
  1. CLOBEX (CLOBETASOL PROPIONATE) SPRAY, 0.05% [Suspect]
     Indication: PSORIASIS
     Dosage: 0.05%
     Route: 061
     Dates: start: 20130327

REACTIONS (2)
  - Skin burning sensation [Recovered/Resolved]
  - Hair disorder [Not Recovered/Not Resolved]
